FAERS Safety Report 6170290-6 (Version None)
Quarter: 2009Q2

REPORT INFORMATION
  Report Type: 
  Country: None (occurrence: None)
  Receive Date: 20090428
  Receipt Date: 20090417
  Transmission Date: 20091009
  Serious: Yes (Other)
  Sender: FDA-Public Use
  Company Number: JP-PFIZER INC-2009201458

PATIENT

DRUGS (2)
  1. SUNITINIB MALATE [Suspect]
     Indication: GASTROINTESTINAL STROMAL TUMOUR
     Dosage: 50 MG, 1X/DAY
     Route: 048
     Dates: start: 20081021
  2. RENIVACE [Concomitant]
     Route: 048
     Dates: start: 20081029, end: 20081118

REACTIONS (4)
  - DECREASED APPETITE [None]
  - DERMATITIS BULLOUS [None]
  - NAUSEA [None]
  - PLATELET COUNT DECREASED [None]
